FAERS Safety Report 17065427 (Version 1)
Quarter: 2019Q4

REPORT INFORMATION
  Report Type: Spontaneous
  Country: US (occurrence: US)
  Receive Date: 20191122
  Receipt Date: 20191122
  Transmission Date: 20200122
  Serious: Yes (Hospitalization)
  Sender: FDA-Public Use
  Company Number: None

PATIENT
  Age: 84 Year
  Sex: Female

DRUGS (2)
  1. TYKERB [Suspect]
     Active Substance: LAPATINIB DITOSYLATE
     Indication: BREAST CANCER
     Dosage: ?          OTHER FREQUENCY:6 TABLETS DAILY;?
     Route: 048
     Dates: start: 20191031, end: 20191104
  2. TYKERB [Concomitant]
     Active Substance: LAPATINIB DITOSYLATE
     Dates: start: 20191031, end: 20191104

REACTIONS (1)
  - Dehydration [None]

NARRATIVE: CASE EVENT DATE: 20191101
